FAERS Safety Report 23786010 (Version 1)
Quarter: 2024Q2

REPORT INFORMATION
  Report Type: Spontaneous
  Country: AU (occurrence: AU)
  Receive Date: 20240426
  Receipt Date: 20240426
  Transmission Date: 20240716
  Serious: Yes (Hospitalization)
  Sender: FDA-Public Use
  Company Number: AU-ABBVIE-5734489

PATIENT
  Sex: Female

DRUGS (2)
  1. BOTOX [Suspect]
     Active Substance: ONABOTULINUMTOXINA
     Indication: Product used for unknown indication
     Dosage: TIME INTERVAL: AS NECESSARY: FOREHEAD
     Route: 030
  2. BOTOX [Suspect]
     Active Substance: ONABOTULINUMTOXINA
     Indication: Product used for unknown indication
     Dosage: TIME INTERVAL: AS NECESSARY: EYES
     Route: 030

REACTIONS (17)
  - Anxiety [Unknown]
  - Confusional state [Unknown]
  - Memory impairment [Unknown]
  - Depression [Unknown]
  - Neurological symptom [Unknown]
  - Headache [Unknown]
  - Skin discolouration [Unknown]
  - Chest discomfort [Unknown]
  - Rash [Unknown]
  - Head discomfort [Unknown]
  - Dyspnoea [Unknown]
  - Suicidal ideation [Unknown]
  - Hypotension [Unknown]
  - Dyspnoea [Unknown]
  - Hypertension [Unknown]
  - Choking sensation [Unknown]
  - Blindness [Unknown]

NARRATIVE: CASE EVENT DATE: 20230501
